APPROVED DRUG PRODUCT: DUTASTERIDE
Active Ingredient: DUTASTERIDE
Strength: 0.5MG
Dosage Form/Route: CAPSULE;ORAL
Application: A204376 | Product #001 | TE Code: AB
Applicant: ADAPTIS PHARMA PRIVATE LTD
Approved: Apr 7, 2017 | RLD: No | RS: No | Type: RX